FAERS Safety Report 19988991 (Version 2)
Quarter: 2021Q4

REPORT INFORMATION
  Report Type: Report from Study
  Country: US (occurrence: US)
  Receive Date: 20211024
  Receipt Date: 20211103
  Transmission Date: 20220303
  Serious: Yes (Hospitalization, Other)
  Sender: FDA-Public Use
  Company Number: US-ABBVIE-21K-163-4131623-00

PATIENT
  Age: 78 Year
  Sex: Female

DRUGS (6)
  1. VENCLEXTA [Suspect]
     Active Substance: VENETOCLAX
     Indication: B-cell prolymphocytic leukaemia
     Route: 048
     Dates: start: 202007
  2. VENCLEXTA [Suspect]
     Active Substance: VENETOCLAX
     Route: 048
  3. VENCLEXTA [Suspect]
     Active Substance: VENETOCLAX
     Route: 048
  4. CALQUENCE [Concomitant]
     Active Substance: ACALABRUTINIB
     Indication: Product used for unknown indication
  5. CALQUENCE [Concomitant]
     Active Substance: ACALABRUTINIB
     Dates: start: 20211018
  6. DEXAMETHASONE [Concomitant]
     Active Substance: DEXAMETHASONE
     Indication: Product used for unknown indication
     Dates: start: 20211017

REACTIONS (14)
  - Central venous catheterisation [Unknown]
  - Hospitalisation [Unknown]
  - Breast pain [Unknown]
  - Abdominal distension [Recovering/Resolving]
  - Abdominal tenderness [Recovered/Resolved]
  - Thrombosis [Unknown]
  - Pain in extremity [Unknown]
  - Pneumonia [Unknown]
  - Urinary tract infection [Unknown]
  - Candida infection [Unknown]
  - Splenomegaly [Unknown]
  - Pelvic pain [Unknown]
  - Abdominal rigidity [Recovered/Resolved]
  - White blood cell count increased [Recovering/Resolving]

NARRATIVE: CASE EVENT DATE: 20211020
